FAERS Safety Report 17551745 (Version 1)
Quarter: 2020Q1

REPORT INFORMATION
  Report Type: Spontaneous
  Country: FR (occurrence: FR)
  Receive Date: 20200317
  Receipt Date: 20200317
  Transmission Date: 20200409
  Serious: Yes (Hospitalization)
  Sender: FDA-Public Use
  Company Number: FR-009507513-2003FRA003529

PATIENT
  Age: 79 Year
  Sex: Female

DRUGS (2)
  1. DIPROSTENE [Suspect]
     Active Substance: BETAMETHASONE DIPROPIONATE\BETAMETHASONE SODIUM PHOSPHATE
     Indication: BRONCHITIS
     Dosage: 1 DOSAGE FORM
     Route: 030
     Dates: start: 20200204, end: 20200204
  2. ROVAMYCINE [Suspect]
     Active Substance: SPIRAMYCIN
     Indication: BRONCHITIS
     Dosage: 6 MEGA-INTERNATIONAL UNIT, QD
     Route: 048
     Dates: start: 20200204, end: 20200208

REACTIONS (1)
  - Encephalitis [Recovered/Resolved]

NARRATIVE: CASE EVENT DATE: 20200208
